FAERS Safety Report 5297423-8 (Version None)
Quarter: 2007Q2

REPORT INFORMATION
  Report Type: 
  Country: None (occurrence: None)
  Receive Date: 20070416
  Receipt Date: 20070413
  Transmission Date: 20071010
  Serious: Yes (Other)
  Sender: FDA-Public Use
  Company Number: IT-BRISTOL-MYERS SQUIBB COMPANY-13747605

PATIENT
  Age: 6 Year
  Sex: Male

DRUGS (2)
  1. CARBOPLATIN [Suspect]
     Indication: GANGLIONEUROBLASTOMA
  2. ETOPOSIDE [Suspect]
     Indication: GANGLIONEUROBLASTOMA

REACTIONS (1)
  - GROWTH HORMONE DEFICIENCY [None]
